FAERS Safety Report 13952630 (Version 1)
Quarter: 2017Q3

REPORT INFORMATION
  Report Type: Spontaneous
  Country: GB (occurrence: GB)
  Receive Date: 20170911
  Receipt Date: 20170911
  Transmission Date: 20171128
  Serious: Yes (Life-Threatening)
  Sender: FDA-Public Use
  Company Number: GB-TORRENT-00015573

PATIENT
  Age: 61 Year
  Sex: Female

DRUGS (9)
  1. FUROSEMIDE. [Concomitant]
     Active Substance: FUROSEMIDE
  2. QUETIAPINE. [Suspect]
     Active Substance: QUETIAPINE
  3. SODIUM VALPROATE [Concomitant]
     Active Substance: VALPROATE SODIUM
  4. LETROZOLE. [Concomitant]
     Active Substance: LETROZOLE
  5. DIGOXIN. [Concomitant]
     Active Substance: DIGOXIN
  6. BISOPROLOL [Concomitant]
     Active Substance: BISOPROLOL
  7. WARFARIN [Suspect]
     Active Substance: WARFARIN
  8. ZEMTARD MR [Concomitant]
  9. PARACETAMOL [Concomitant]
     Active Substance: ACETAMINOPHEN

REACTIONS (1)
  - International normalised ratio increased [Recovered/Resolved]

NARRATIVE: CASE EVENT DATE: 20170724
